FAERS Safety Report 20727869 (Version 1)
Quarter: 2022Q2

REPORT INFORMATION
  Report Type: Report from Study
  Country: BR (occurrence: BR)
  Receive Date: 20220419
  Receipt Date: 20220419
  Transmission Date: 20220721
  Serious: Yes (Other)
  Sender: FDA-Public Use
  Company Number: BR-ABBOTT-2022A-1347734

PATIENT
  Sex: Female
  Weight: 60 kg

DRUGS (3)
  1. DEPAKOTE ER [Interacting]
     Active Substance: DIVALPROEX SODIUM
     Indication: Seizure
     Dosage: DD: 1000MG; TWICE A DAY 8 A.M. AND 8 P.M.
     Route: 048
     Dates: start: 2019
  2. DEPAKOTE ER [Interacting]
     Active Substance: DIVALPROEX SODIUM
     Indication: Supplementation therapy
  3. PHENOBARBITAL [Concomitant]
     Active Substance: PHENOBARBITAL
     Indication: Seizure
     Dosage: DD: 200MG; TWICE A DAY 8 A.M. AND 8 P.M

REACTIONS (5)
  - Potentiating drug interaction [Unknown]
  - Inappropriate schedule of product administration [Unknown]
  - Off label use [Unknown]
  - Headache [Unknown]
  - Seizure [Unknown]
